FAERS Safety Report 6282194-9 (Version None)
Quarter: 2009Q3

REPORT INFORMATION
  Report Type: 
  Country: None (occurrence: None)
  Receive Date: 20090721
  Receipt Date: 20090721
  Transmission Date: 20100115
  Serious: Yes (Death, Hospitalization)
  Sender: FDA-Public Use
  Company Number: None

PATIENT
  Sex: Male

DRUGS (1)
  1. REVLIMID [Suspect]
     Dosage: 15MG  DAILY X21D ORALLY
     Route: 048
     Dates: start: 20071211, end: 20071217

REACTIONS (4)
  - LEUKOPENIA [None]
  - NEUTROPHIL COUNT DECREASED [None]
  - PYREXIA [None]
  - REFUSAL OF TREATMENT BY PATIENT [None]
